FAERS Safety Report 5475608-5 (Version None)
Quarter: 2007Q4

REPORT INFORMATION
  Report Type: 
  Country: None (occurrence: None)
  Receive Date: 20071003
  Receipt Date: 20070516
  Transmission Date: 20080405
  Serious: No
  Sender: FDA-Public Use
  Company Number: US-KINGPHARMUSA00001-K200700599

PATIENT

DRUGS (3)
  1. SONATA [Suspect]
     Indication: INSOMNIA
     Dosage: 10 MG, SINGLE
     Route: 048
     Dates: start: 20070515, end: 20070515
  2. SONATA [Suspect]
     Indication: CIRCADIAN RHYTHM SLEEP DISORDER
  3. MULTIVITAMIN  /00831701/ [Concomitant]
     Indication: VITAMIN SUPPLEMENTATION
     Dosage: UNK, QD
     Route: 048

REACTIONS (1)
  - DRUG INEFFECTIVE [None]
